FAERS Safety Report 5257205-X (Version None)
Quarter: 2007Q1

REPORT INFORMATION
  Report Type: 
  Country: None (occurrence: None)
  Receive Date: 20070307
  Receipt Date: 20070305
  Transmission Date: 20070707
  Serious: Yes (Hospitalization)
  Sender: FDA-Public Use
  Company Number: FR-GLAXOSMITHKLINE-B0460796A

PATIENT
  Age: 80 Year
  Sex: Female

DRUGS (3)
  1. AUGMENTIN [Suspect]
     Route: 048
     Dates: start: 20060908, end: 20060912
  2. PANOS [Suspect]
     Route: 048
     Dates: start: 20060904, end: 20060908
  3. ATARAX [Concomitant]
     Route: 048
     Dates: start: 20060908, end: 20060912

REACTIONS (4)
  - ERYTHEMA [None]
  - RASH [None]
  - SKIN EXFOLIATION [None]
  - TOXIC SKIN ERUPTION [None]
